FAERS Safety Report 24058010 (Version 1)
Quarter: 2024Q3

REPORT INFORMATION
  Report Type: Other
  Country: US (occurrence: US)
  Receive Date: 20240707
  Receipt Date: 20240707
  Transmission Date: 20241017
  Serious: Yes (Other)
  Sender: B BRAUN
  Company Number: US-B.Braun Medical Inc.-2158889

PATIENT
  Age: 63 Year
  Sex: Female

DRUGS (4)
  1. HEPARIN SODIUM IN DEXTROSE [Suspect]
     Active Substance: HEPARIN SODIUM
     Indication: Pulmonary embolism
  2. APIXABAN [Concomitant]
     Active Substance: APIXABAN
  3. FRESH FROZEN PLASMA [Concomitant]
     Active Substance: HUMAN PLASMA
  4. PLATELETS [Concomitant]
     Active Substance: HUMAN PLATELET, ALLOGENIC

REACTIONS (1)
  - Encephalopathy [Not Recovered/Not Resolved]
